FAERS Safety Report 17792230 (Version 2)
Quarter: 2020Q2

REPORT INFORMATION
  Report Type: Report from Study
  Country: US (occurrence: US)
  Receive Date: 20200515
  Receipt Date: 20200610
  Transmission Date: 20200714
  Serious: Yes (Other)
  Sender: FDA-Public Use
  Company Number: US-SAKK-2020SA120694AA

PATIENT

DRUGS (2)
  1. DUPILUMAB [Suspect]
     Active Substance: DUPILUMAB
     Dosage: 300 MG, QOW
     Route: 058
  2. DUPILUMAB [Suspect]
     Active Substance: DUPILUMAB
     Indication: DERMATITIS ATOPIC
     Dosage: 600 MG, 1X
     Route: 058

REACTIONS (6)
  - Acne [Unknown]
  - Dermatitis atopic [Recovered/Resolved]
  - Immune system disorder [Recovered/Resolved]
  - Stress [Unknown]
  - Acne [Recovered/Resolved]
  - Near death experience [Recovered/Resolved]

NARRATIVE: CASE EVENT DATE: 202004
